FAERS Safety Report 24877332 (Version 2)
Quarter: 2025Q1

REPORT INFORMATION
  Report Type: Report from Study
  Country: KR (occurrence: KR)
  Receive Date: 20250123
  Receipt Date: 20250317
  Transmission Date: 20250409
  Serious: Yes (Other)
  Sender: TAKEDA
  Company Number: KR-TAKEDA-2025TUS005867

PATIENT
  Sex: Female

DRUGS (23)
  1. BRIGATINIB [Suspect]
     Active Substance: BRIGATINIB
     Indication: Non-small cell lung cancer
     Dosage: 90 MILLIGRAM, QD
     Dates: start: 20230213, end: 20230219
  2. BRIGATINIB [Suspect]
     Active Substance: BRIGATINIB
     Dosage: 180 MILLIGRAM, QD
     Dates: start: 20230220, end: 20241006
  3. DEPAKOTE ER [Concomitant]
     Active Substance: DIVALPROEX SODIUM
     Indication: Bipolar II disorder
     Dosage: 500 MILLIGRAM, QD
     Dates: start: 20230302, end: 20241028
  4. ABILIFY [Concomitant]
     Active Substance: ARIPIPRAZOLE
     Indication: Bipolar II disorder
     Dosage: 1 MILLIGRAM, QD
     Dates: start: 20230302
  5. SYNTHROID [Concomitant]
     Active Substance: LEVOTHYROXINE SODIUM
     Indication: Hypothyroidism
     Dosage: 0.025 MILLIGRAM, QD
     Dates: start: 20230601
  6. AMLODIPINE OROTATE [Concomitant]
     Active Substance: AMLODIPINE OROTATE
     Indication: Hypertension
     Dosage: 1 DOSAGE FORM, QD
     Dates: start: 20231012
  7. Zanapam [Concomitant]
     Indication: Bipolar II disorder
     Dosage: 0.125 MILLIGRAM, QD
     Dates: start: 20230601
  8. Topisol [Concomitant]
     Indication: Onychomycosis
     Dosage: 1 GRAM, QD ON TOE NAIL
     Dates: start: 20230511
  9. Topisol [Concomitant]
     Indication: Dermatitis contact
     Dosage: 1 GRAM, QD (DERMA)
     Route: 061
     Dates: start: 20240401
  10. Dong a suprax [Concomitant]
     Indication: Pneumonia
     Dosage: 300 MILLIGRAM, QD
     Dates: start: 20240926, end: 20241006
  11. LAFUTIDINE [Concomitant]
     Active Substance: LAFUTIDINE
     Indication: Gastritis prophylaxis
     Dosage: 20 MILLIGRAM, QD
     Dates: start: 20240926, end: 20241018
  12. Cresnon [Concomitant]
     Indication: Hyperlipidaemia
     Dosage: 10 MILLIGRAM, QD
     Dates: start: 20240926
  13. ACETYLCYSTEINE [Concomitant]
     Active Substance: ACETYLCYSTEINE
     Indication: Pneumonia
     Dosage: 600 MILLIGRAM, QD
     Dates: start: 20241007, end: 20241028
  14. Jeil atropine sulfate [Concomitant]
     Indication: Imaging procedure
     Dosage: 0.5 MILLIGRAM, QD
     Dates: start: 20241015, end: 20241015
  15. CELEBREX [Concomitant]
     Active Substance: CELECOXIB
     Indication: Neuropathy peripheral
     Dosage: 200 MILLIGRAM, QD
     Dates: start: 20241015, end: 20241018
  16. DIFLUCAN [Concomitant]
     Active Substance: FLUCONAZOLE
     Indication: Pneumonia
     Dosage: 200 MILLIGRAM, QD
     Dates: start: 20241012, end: 20241016
  17. ALLEGRA [Concomitant]
     Active Substance: FEXOFENADINE HYDROCHLORIDE
     Indication: Dermatitis contact
     Dosage: 120 MILLIGRAM, QD
     Dates: start: 20241007, end: 20241013
  18. XYZAL [Concomitant]
     Active Substance: LEVOCETIRIZINE DIHYDROCHLORIDE
     Indication: Dermatitis contact
     Dosage: 5 MILLIGRAM, QD
     Dates: start: 20241007, end: 20241013
  19. MEPERIDINE HYDROCHLORIDE [Concomitant]
     Active Substance: MEPERIDINE HYDROCHLORIDE
     Indication: Imaging procedure
     Dosage: 25 MILLIGRAM, QD
     Dates: start: 20241015, end: 20241015
  20. Teicocin [Concomitant]
     Indication: Pneumonia
     Dosage: 400 MILLIGRAM, QD
     Dates: start: 20241014, end: 20241030
  21. MEROPENEM [Concomitant]
     Active Substance: MEROPENEM
     Indication: Pneumonia
     Dosage: 3 GRAM, QD
     Dates: start: 20241014, end: 20241107
  22. MAXIPIME [Concomitant]
     Active Substance: CEFEPIME HYDROCHLORIDE
     Indication: Pneumonia
     Dosage: 2 GRAM, QD
     Dates: start: 20241007, end: 20241013
  23. Daewoongbio clarithromycin [Concomitant]
     Indication: Pneumonia
     Dosage: 500 MILLIGRAM, QD
     Dates: start: 20241007, end: 20241013

REACTIONS (1)
  - Diabetes mellitus [Recovering/Resolving]

NARRATIVE: CASE EVENT DATE: 20241016
